FAERS Safety Report 15046271 (Version 2)
Quarter: 2018Q3

REPORT INFORMATION
  Report Type: Spontaneous
  Country: JP (occurrence: JP)
  Receive Date: 20180621
  Receipt Date: 20180705
  Transmission Date: 20181010
  Serious: Yes (Hospitalization)
  Sender: FDA-Public Use
  Company Number: PHJP2018JP012739

PATIENT
  Age: 77 Year
  Sex: Female

DRUGS (29)
  1. STALEVO [Suspect]
     Active Substance: CARBIDOPA\ENTACAPONE\LEVODOPA
     Indication: PARKINSON^S DISEASE
     Dosage: 1DF: CARBIDOPA 10MG / ENTACAPONE 100MG / LEVODOPA 100MG, QID, AFTER EVERY MEAL AND AT 15:00
     Route: 048
     Dates: end: 20180613
  2. RIVOTRIL [Concomitant]
     Active Substance: CLONAZEPAM
     Indication: PRODUCT USED FOR UNKNOWN INDICATION
     Dosage: 0.5 MG, QD, AFTER DINNER
     Route: 048
     Dates: end: 20180613
  3. AMITIZA [Concomitant]
     Active Substance: LUBIPROSTONE
     Dosage: 24 UG, BID, AFTER BREAKFAST AND AFTER DINNER
     Route: 048
     Dates: start: 20180617
  4. MEMARY [Concomitant]
     Active Substance: MEMANTINE HYDROCHLORIDE
     Indication: PRODUCT USED FOR UNKNOWN INDICATION
     Dosage: 5 MG, QD, AFTER DINNER
     Route: 048
     Dates: end: 20180613
  5. LAXOBERON [Concomitant]
     Active Substance: SODIUM PICOSULFATE
     Indication: CONSTIPATION
     Dosage: UNK, PRN, WHEN CONSTIPATIED
     Route: 048
  6. SENNOSIDE [Concomitant]
     Active Substance: SENNOSIDES
     Indication: PRODUCT USED FOR UNKNOWN INDICATION
     Dosage: 24 MG, QD
     Route: 048
     Dates: end: 20180613
  7. SENNOSIDE [Concomitant]
     Active Substance: SENNOSIDES
     Dosage: 24 MG, QD, BEFORE SLEEP
     Route: 048
     Dates: start: 20180617
  8. MEMARY [Concomitant]
     Active Substance: MEMANTINE HYDROCHLORIDE
     Dosage: 5 MG, QD, AFTER DINNER
     Route: 048
     Dates: start: 20180617
  9. NOURIAST [Concomitant]
     Active Substance: ISTRADEFYLLINE
     Dosage: 40 MG, QD, AFTER BREAKFAST
     Route: 048
     Dates: start: 20180617
  10. METHYCOBAL [Concomitant]
     Active Substance: METHYLCOBALAMIN
     Dosage: 500 UG, TID, AFTER EACH MEAL
     Route: 048
     Dates: start: 20180617
  11. TOVIAZ [Concomitant]
     Active Substance: FESOTERODINE FUMARATE
     Indication: PRODUCT USED FOR UNKNOWN INDICATION
     Dosage: 4 MG, QD, AFTER DINNER
     Route: 048
     Dates: end: 20180613
  12. AMITIZA [Concomitant]
     Active Substance: LUBIPROSTONE
     Indication: PRODUCT USED FOR UNKNOWN INDICATION
     Dosage: 24 UG, BID, AFTER BREAKFAST AND AFTER DINNER
     Route: 048
     Dates: end: 20180613
  13. MAGNESIUM OXIDE. [Concomitant]
     Active Substance: MAGNESIUM OXIDE
     Dosage: 500 MG, BID, AFTER BREAKFAST, AFTER DINNER
     Route: 048
     Dates: start: 20180617
  14. TRERIEF [Concomitant]
     Active Substance: ZONISAMIDE
     Indication: PRODUCT USED FOR UNKNOWN INDICATION
     Dosage: 50 MG, QD, AFTER BREAKFAST
     Route: 048
     Dates: end: 20180613
  15. MIRAPEX [Concomitant]
     Active Substance: PRAMIPEXOLE DIHYDROCHLORIDE
     Indication: PRODUCT USED FOR UNKNOWN INDICATION
     Dosage: 0.375 MG, QD, AFTER BREAKFAST
     Route: 048
     Dates: end: 20180613
  16. METHYCOBAL [Concomitant]
     Active Substance: METHYLCOBALAMIN
     Indication: PRODUCT USED FOR UNKNOWN INDICATION
     Dosage: 500 UG, TID, AFTER EACH MEAL
     Route: 048
     Dates: end: 20180613
  17. MAGNESIUM OXIDE. [Concomitant]
     Active Substance: MAGNESIUM OXIDE
     Indication: PRODUCT USED FOR UNKNOWN INDICATION
     Dosage: 500 MG, BID
     Route: 048
     Dates: end: 20180613
  18. NOURIAST [Concomitant]
     Active Substance: ISTRADEFYLLINE
     Indication: PRODUCT USED FOR UNKNOWN INDICATION
     Dosage: 40 MG, QD, AFTER BREAKFAST
     Route: 048
     Dates: end: 20180613
  19. FAMOTIDINE. [Concomitant]
     Active Substance: FAMOTIDINE
     Dosage: 20 MG, QD, AFTER DINNER
     Route: 048
     Dates: start: 20180617
  20. TOVIAZ [Concomitant]
     Active Substance: FESOTERODINE FUMARATE
     Dosage: 4 MG, QD, AFTER DINNER
     Route: 048
     Dates: start: 20180617
  21. STALEVO [Suspect]
     Active Substance: CARBIDOPA\ENTACAPONE\LEVODOPA
     Dosage: 1DF: CARBIDOPA 10MG / ENTACAPONE 100MG / LEVODOPA 100MG, QID, AFTER EVERY MEAL AND AT 15:00
     Route: 048
     Dates: start: 20180617
  22. FP?OD [Concomitant]
     Active Substance: SELEGILINE HYDROCHLORIDE
     Indication: PRODUCT USED FOR UNKNOWN INDICATION
     Dosage: 2.5 MG, BID, AFTER BREAKFAST AND AFTER LUNCH
     Route: 048
     Dates: end: 20180613
  23. FP?OD [Concomitant]
     Active Substance: SELEGILINE HYDROCHLORIDE
     Dosage: 2.5 MG, BID, AFTER BREAKFAST AND AFTER LUNCH
     Route: 048
     Dates: start: 20180617
  24. TRERIEF [Concomitant]
     Active Substance: ZONISAMIDE
     Dosage: 50 MG, QD, AFTER BREAKFAST
     Route: 048
     Dates: start: 20180617
  25. FAMOTIDINE. [Concomitant]
     Active Substance: FAMOTIDINE
     Indication: PRODUCT USED FOR UNKNOWN INDICATION
     Dosage: 20 MG, QD, AFTER DINNER
     Route: 048
     Dates: end: 20180613
  26. MIRAPEX [Concomitant]
     Active Substance: PRAMIPEXOLE DIHYDROCHLORIDE
     Dosage: 0.375 MG, QD, AFTER BREAKFAST
     Route: 048
     Dates: start: 20180617
  27. RIVOTRIL [Concomitant]
     Active Substance: CLONAZEPAM
     Dosage: 0.5 MG, QD, AFTER DINNER
     Route: 048
     Dates: start: 20180617
  28. TELEMINSOFT [Concomitant]
     Active Substance: BISACODYL
     Indication: CONSTIPATION
     Dosage: 10 MG, PRN, WHEN CONSTIPATED
     Route: 054
  29. DOPASTON [Concomitant]
     Active Substance: LEVODOPA
     Indication: PARKINSON^S DISEASE
     Dosage: 75 MG, UNK
     Route: 042
     Dates: start: 20180615, end: 20180619

REACTIONS (2)
  - Ileus paralytic [Recovering/Resolving]
  - Dysphagia [Unknown]

NARRATIVE: CASE EVENT DATE: 20180613
